FAERS Safety Report 8854781 (Version 1)
Quarter: 2012Q4

REPORT INFORMATION
  Report Type: 
  Country: IN (occurrence: IN)
  Receive Date: 20121023
  Receipt Date: 20121023
  Transmission Date: 20130627
  Serious: Yes (Other)
  Sender: FDA-Public Use
  Company Number: IN-MYLANLABS-2012S1021119

PATIENT
  Age: 33 Year
  Sex: Female

DRUGS (3)
  1. FLUOXETINE [Suspect]
     Indication: DEPRESSIVE SYMPTOM
     Dosage: 20 mg/d
     Route: 065
  2. ARIPIPRAZOLE [Interacting]
     Dosage: 10 mg/d
     Route: 065
  3. ARIPIPRAZOLE [Interacting]
     Dosage: 30 mg/d
     Route: 065

REACTIONS (4)
  - Dystonia [Recovered/Resolved]
  - Akathisia [Recovered/Resolved]
  - Parkinsonism [Recovered/Resolved]
  - Drug interaction [Recovered/Resolved]
